FAERS Safety Report 15517972 (Version 4)
Quarter: 2018Q4

REPORT INFORMATION
  Report Type: Spontaneous
  Country: JP (occurrence: JP)
  Receive Date: 20181017
  Receipt Date: 20181206
  Transmission Date: 20190205
  Serious: Yes (Hospitalization)
  Sender: FDA-Public Use
  Company Number: JP-EISAI MEDICAL RESEARCH-EC-2018-046232

PATIENT
  Age: 55 Year
  Sex: Female
  Weight: 58 kg

DRUGS (8)
  1. AMINOLEBAN [Concomitant]
     Active Substance: AMINO ACIDS
     Indication: HYPERAMMONAEMIA
     Route: 065
     Dates: start: 20181012
  2. ENTECAVIR HYDRATE [Concomitant]
     Indication: HEPATITIS B
     Dosage: UNKNOWN
     Route: 065
  3. LENVIMA [Suspect]
     Active Substance: LENVATINIB
     Indication: HEPATOCELLULAR CARCINOMA
     Route: 048
     Dates: start: 20180927, end: 20181004
  4. PIARLE [Concomitant]
     Indication: HYPERAMMONAEMIA
     Route: 048
     Dates: start: 20181012
  5. LENVIMA [Suspect]
     Active Substance: LENVATINIB
     Route: 048
     Dates: start: 20181012, end: 20181019
  6. RIFXIMA [Concomitant]
     Active Substance: RIFAXIMIN
     Indication: HYPERAMMONAEMIA
     Route: 048
  7. LETROZOLE. [Concomitant]
     Active Substance: LETROZOLE
     Indication: BREAST CANCER
     Dosage: UNKNOWN
     Route: 065
  8. NEXIUM [Concomitant]
     Active Substance: ESOMEPRAZOLE MAGNESIUM
     Indication: PRODUCT USED FOR UNKNOWN INDICATION
     Dosage: UNKNOWN
     Route: 065

REACTIONS (2)
  - Hepatic encephalopathy [Recovered/Resolved]
  - Epistaxis [Recovered/Resolved]

NARRATIVE: CASE EVENT DATE: 20181003
